FAERS Safety Report 10404337 (Version 1)
Quarter: 2014Q1

REPORT INFORMATION
  Report Type: Spontaneous
  Country: US (occurrence: None)
  Receive Date: 20140214
  Receipt Date: 20140214
  Transmission Date: 20141002
  Serious: No
  Sender: FDA-Public Use
  Company Number: A-US2013-92372

PATIENT
  Age: 64 Year
  Sex: Male

DRUGS (2)
  1. OPSUMIT [Suspect]
     Indication: PULMONARY HYPERTENSION
     Route: 048
  2. COUMADIN (WARFARIN SODIUM) [Concomitant]

REACTIONS (2)
  - Decreased appetite [None]
  - International normalised ratio increased [None]
